FAERS Safety Report 9928549 (Version 1)
Quarter: 2014Q1

REPORT INFORMATION
  Report Type: Spontaneous
  Country: US (occurrence: None)
  Receive Date: 20140225
  Receipt Date: 20140225
  Transmission Date: 20141002
  Serious: Yes (Hospitalization, Disabling)
  Sender: FDA-Public Use
  Company Number: NSR_01521_2014

PATIENT
  Age: 40 Year
  Sex: Male
  Weight: 90.72 kg

DRUGS (1)
  1. METOCLOPRAMIDE [Suspect]
     Indication: ABDOMINAL PAIN UPPER
     Dates: start: 2013

REACTIONS (8)
  - Coeliac disease [None]
  - Suicidal ideation [None]
  - Abnormal behaviour [None]
  - Insomnia [None]
  - Anger [None]
  - Intentional self-injury [None]
  - Paranoia [None]
  - Fear [None]
